FAERS Safety Report 8823952 (Version 2)
Quarter: 2012Q4

REPORT INFORMATION
  Report Type: 
  Country: BR (occurrence: BR)
  Receive Date: 20121003
  Receipt Date: 20121025
  Transmission Date: 20130627
  Serious: Yes (Death)
  Sender: FDA-Public Use
  Company Number: BR-PFIZER INC-2012181049

PATIENT
  Age: 47 Year
  Sex: Male

DRUGS (8)
  1. SUTENT [Suspect]
     Indication: RENAL CELL CARCINOMA
     Dosage: 50 mg, UNK
     Dates: end: 201111
  2. SUTENT [Suspect]
     Dosage: 37.5 mg, cycle 4 to 2
     Route: 048
     Dates: start: 20120625
  3. ENALAPRIL [Concomitant]
  4. FOLIC ACID [Concomitant]
  5. PREDNISONE [Concomitant]
  6. RANITIDINE [Concomitant]
  7. GLIBENCLAMIDE [Concomitant]
  8. CARVEDILOL [Concomitant]

REACTIONS (8)
  - Respiratory failure [Fatal]
  - Disease progression [Fatal]
  - Renal cell carcinoma [Fatal]
  - Dyspnoea [Unknown]
  - Abdominal discomfort [Unknown]
  - Flatulence [Unknown]
  - Swelling [Unknown]
  - Blood glucose increased [Unknown]
